FAERS Safety Report 11363603 (Version 1)
Quarter: 2015Q3

REPORT INFORMATION
  Report Type: Report from Study
  Country: BR (occurrence: BR)
  Receive Date: 20150811
  Receipt Date: 20150811
  Transmission Date: 20151125
  Serious: Yes (Hospitalization)
  Sender: FDA-Public Use
  Company Number: PHHY2015BR094769

PATIENT
  Sex: Male
  Weight: 80 kg

DRUGS (1)
  1. DIOVAN HCT [Suspect]
     Active Substance: HYDROCHLOROTHIAZIDE\VALSARTAN
     Indication: HYPERTENSION
     Dosage: 1 DF, QD
     Route: 048

REACTIONS (6)
  - Blood pressure fluctuation [Recovering/Resolving]
  - Dizziness [Recovering/Resolving]
  - Cerebrovascular accident [Recovering/Resolving]
  - Pain [Recovering/Resolving]
  - Blood pressure increased [Recovering/Resolving]
  - Malaise [Recovering/Resolving]

NARRATIVE: CASE EVENT DATE: 2009
